FAERS Safety Report 22780575 (Version 2)
Quarter: 2024Q1

REPORT INFORMATION
  Report Type: Report from Study
  Country: JP (occurrence: JP)
  Receive Date: 20230803
  Receipt Date: 20240221
  Transmission Date: 20240410
  Serious: Yes (Other)
  Sender: FDA-Public Use
  Company Number: JP-CELLTRION INC.-2020JP023940

PATIENT

DRUGS (12)
  1. INFLIXIMAB-DYYB [Suspect]
     Active Substance: INFLIXIMAB-DYYB
     Indication: Colitis ulcerative
     Dosage: 340 MG  (WEIGHT: 68 KG)
     Route: 041
     Dates: start: 20181030, end: 20181030
  2. INFLIXIMAB-DYYB [Suspect]
     Active Substance: INFLIXIMAB-DYYB
     Dosage: 335 MG (WEIGHT: 67 KG)
     Route: 041
     Dates: start: 20181218, end: 20181218
  3. INFLIXIMAB-DYYB [Suspect]
     Active Substance: INFLIXIMAB-DYYB
     Dosage: 340 MG (WEIGHT: 68 KG)
     Route: 041
     Dates: start: 20190212, end: 20190212
  4. INFLIXIMAB-DYYB [Suspect]
     Active Substance: INFLIXIMAB-DYYB
     Dosage: 350 MG (WEIGHT: 70 KG)
     Route: 041
     Dates: start: 20190409, end: 20190409
  5. INFLIXIMAB-DYYB [Suspect]
     Active Substance: INFLIXIMAB-DYYB
     Dosage: 360 MG (WEIGHT: 71.5 KG)
     Route: 041
     Dates: start: 20190924, end: 20190924
  6. INFLIXIMAB-DYYB [Suspect]
     Active Substance: INFLIXIMAB-DYYB
     Dosage: 370 MG (WEIGHT: 74.3 KG)
     Route: 041
     Dates: start: 20201021, end: 20201021
  7. INFLIXIMAB-DYYB [Suspect]
     Active Substance: INFLIXIMAB-DYYB
     Dosage: 375 MG (WEIGHT: 75 KG)
     Route: 041
     Dates: start: 20211111, end: 20211111
  8. INFLIXIMAB-DYYB [Suspect]
     Active Substance: INFLIXIMAB-DYYB
     Dosage: 380 MG (WEIGHT: 75.5 KG)
     Route: 041
     Dates: start: 20221013, end: 20221013
  9. INFLIXIMAB-DYYB [Suspect]
     Active Substance: INFLIXIMAB-DYYB
     Dosage: 360 MG (WEIGHT: 72.3 KG)
     Route: 041
     Dates: start: 20231109, end: 20231109
  10. MESALAMINE [Concomitant]
     Active Substance: MESALAMINE
     Dosage: 6000 MILLIGRAM/DAY
     Route: 048
     Dates: start: 20180913
  11. SULFASALAZINE [Concomitant]
     Active Substance: SULFASALAZINE
     Dosage: 2000 MILLIGRAM/DAY
     Route: 048
     Dates: start: 20180913
  12. AZATHIOPRINE [Concomitant]
     Active Substance: AZATHIOPRINE
     Dosage: 50 MILLIGRAM/DAY
     Route: 048
     Dates: start: 20181016

REACTIONS (15)
  - Rectal polyp [Recovered/Resolved]
  - Hyperuricaemia [Not Recovered/Not Resolved]
  - Seasonal allergy [Recovered/Resolved]
  - Seasonal allergy [Recovered/Resolved]
  - Pollakiuria [Recovered/Resolved]
  - Hypozincaemia [Not Recovered/Not Resolved]
  - Anaemia [Not Recovered/Not Resolved]
  - Gastrooesophageal reflux disease [Not Recovered/Not Resolved]
  - Hypertension [Not Recovered/Not Resolved]
  - Vomiting [Recovered/Resolved]
  - Pruritus [Unknown]
  - Underdose [Unknown]
  - Overdose [Unknown]
  - Intentional product use issue [Unknown]
  - Intentional product use issue [Unknown]

NARRATIVE: CASE EVENT DATE: 20181107
